FAERS Safety Report 14038098 (Version 12)
Quarter: 2019Q4

REPORT INFORMATION
  Report Type: Spontaneous
  Country: KR (occurrence: KR)
  Receive Date: 20171004
  Receipt Date: 20191217
  Transmission Date: 20200122
  Serious: Yes (Other)
  Sender: FDA-Public Use
  Company Number: KR-009507513-1710KOR000051

PATIENT
  Age: 72 Year
  Sex: Female

DRUGS (24)
  1. LASIX [Concomitant]
     Active Substance: FUROSEMIDE
     Indication: PROPHYLAXIS
     Dosage: 20 MG, QD
     Route: 042
     Dates: start: 20170617, end: 20170617
  2. GLUCOPHAGE [Concomitant]
     Active Substance: METFORMIN HYDROCHLORIDE
     Indication: DIABETES MELLITUS
     Dosage: 500 MG, QD
     Route: 048
     Dates: start: 20170619, end: 20170629
  3. NOXAFIL [Suspect]
     Active Substance: POSACONAZOLE
     Dosage: 300 MILLIGRAM, QD
     Route: 048
     Dates: start: 20170622, end: 20170627
  4. CYTARABINE. [Concomitant]
     Active Substance: CYTARABINE
     Indication: ACUTE MYELOID LEUKAEMIA
     Dosage: 35 MG, QD; STRENGTH: 1 G /20 ML
     Route: 042
     Dates: start: 20170621, end: 20170624
  5. RINO EBASTEL [Concomitant]
     Active Substance: EBASTINE\PSEUDOEPHEDRINE HYDROCHLORIDE
     Indication: RHINORRHOEA
     Dosage: 1 CAPSULE, ONCE DAILY
     Route: 048
     Dates: start: 20170616, end: 20170619
  6. ARA-C [Suspect]
     Active Substance: CYTARABINE
     Indication: ACUTE MYELOID LEUKAEMIA
     Dosage: UNK
     Route: 065
     Dates: end: 20170615
  7. MAXIPIME [Concomitant]
     Active Substance: CEFEPIME HYDROCHLORIDE
     Indication: FEBRILE NEUTROPENIA
     Dosage: 1 G, QD
     Route: 042
     Dates: start: 20170618, end: 20170619
  8. HYDRINE [Concomitant]
     Indication: ACUTE MYELOID LEUKAEMIA
     Dosage: 1 G, ONCE DAILY
     Route: 048
     Dates: start: 20170616, end: 20170616
  9. JANUVIA [Concomitant]
     Active Substance: SITAGLIPTIN PHOSPHATE
     Indication: DIABETES MELLITUS
     Dosage: 50 MG, QD
     Route: 048
     Dates: start: 20170620, end: 20170629
  10. SEPTRIN [Concomitant]
     Active Substance: SULFAMETHOXAZOLE\TRIMETHOPRIM
     Indication: INFECTION PROPHYLAXIS
     Dosage: 2 TABLET, QOD
     Route: 048
     Dates: start: 20170621, end: 20170626
  11. CITOPCIN (CIPROFLOXACIN) [Concomitant]
     Indication: INFECTION PROPHYLAXIS
     Dosage: 400 MG, ONCE DAILY
     Route: 042
     Dates: start: 20170616, end: 20180627
  12. DENOGAN [Concomitant]
     Active Substance: PROPACETAMOL HYDROCHLORIDE
     Indication: FEBRILE NEUTROPENIA
     Dosage: 0.5 VIAL, QD
     Route: 042
     Dates: start: 20170617, end: 20170619
  13. ZOYLEX [Concomitant]
     Indication: INFECTION PROPHYLAXIS
     Dosage: 400 MG, BID
     Route: 048
     Dates: start: 20170621, end: 20170627
  14. MAXIPIME [Concomitant]
     Active Substance: CEFEPIME HYDROCHLORIDE
     Indication: INFECTION PROPHYLAXIS
     Dosage: 2 G, ONCE DAILY
     Route: 042
     Dates: start: 20170616, end: 20170619
  15. MEROPEN [Concomitant]
     Active Substance: MEROPENEM
     Indication: INFECTION PROPHYLAXIS
     Dosage: 1 G, TID
     Route: 042
     Dates: start: 20170619, end: 20170629
  16. VANCOCIN CP [Concomitant]
     Indication: INFECTION PROPHYLAXIS
     Dosage: 1 G, QD
     Route: 042
     Dates: start: 20170619, end: 20170715
  17. NOXAFIL [Suspect]
     Active Substance: POSACONAZOLE
     Indication: ANTIFUNGAL PROPHYLAXIS
     Dosage: 300 MILLIGRAM, BID
     Route: 048
     Dates: start: 20170621, end: 20170621
  18. ZYLORIC [Concomitant]
     Active Substance: ALLOPURINOL
     Indication: PROPHYLAXIS
     Dosage: 100 MG, BID
     Route: 048
     Dates: start: 20170616, end: 20170627
  19. HYDRINE [Concomitant]
     Dosage: 1 G, BID
     Route: 048
     Dates: start: 20170617, end: 20170617
  20. PLAKON [Concomitant]
     Indication: COUGH
     Dosage: 3 MG, QD. STRENGTH: 3MG/2ML
     Route: 042
     Dates: start: 20170617, end: 20170618
  21. TRIDOL (TRAMADOL HYDROCHLORIDE) [Concomitant]
     Indication: FEBRILE NEUTROPENIA
     Dosage: 50 MILLIGRAM, QD. STRENGTH: 50MG/ML
     Route: 042
     Dates: start: 20170619, end: 20170619
  22. POTASSIUM CHLORIDE. [Concomitant]
     Active Substance: POTASSIUM CHLORIDE
     Indication: HYPOKALAEMIA
     Dosage: 20 ML, QD
     Route: 042
     Dates: start: 20170617, end: 20170619
  23. K-CONTIN [Concomitant]
     Indication: HYPOKALAEMIA
     Dosage: 1.2 G, QD
     Route: 048
     Dates: start: 20170619, end: 20170620
  24. EUGLEX [Concomitant]
     Indication: DIABETES MELLITUS
     Dosage: 4 MG, QD
     Route: 048
     Dates: start: 20170622, end: 20170629

REACTIONS (7)
  - Hepatic function abnormal [Recovered/Resolved]
  - Febrile neutropenia [Not Recovered/Not Resolved]
  - Hypokalaemia [Recovered/Resolved]
  - Hypokalaemia [Not Recovered/Not Resolved]
  - Prothrombin time prolonged [Unknown]
  - Subdural haematoma [Recovered/Resolved with Sequelae]
  - Hypokalaemia [Recovered/Resolved]

NARRATIVE: CASE EVENT DATE: 20170622
